FAERS Safety Report 5860149-3 (Version None)
Quarter: 2008Q3

REPORT INFORMATION
  Report Type: 
  Country: None (occurrence: None)
  Receive Date: 20080827
  Receipt Date: 20080815
  Transmission Date: 20090109
  Serious: Yes (Hospitalization)
  Sender: FDA-Public Use
  Company Number: US-PFIZER INC-2008070038

PATIENT
  Sex: Male

DRUGS (6)
  1. SU-011,248 [Suspect]
  2. GEMCITABINE [Suspect]
  3. OMEPRAZOLE [Concomitant]
  4. LISINOPRIL [Concomitant]
  5. RITALIN [Concomitant]
  6. AMBIEN [Concomitant]

REACTIONS (5)
  - DEHYDRATION [None]
  - DIARRHOEA [None]
  - GASTROENTERITIS [None]
  - ORTHOSTATIC HYPOTENSION [None]
  - VOMITING [None]
